FAERS Safety Report 11170976 (Version 1)
Quarter: 2015Q2

REPORT INFORMATION
  Report Type: Spontaneous
  Country: US (occurrence: US)
  Receive Date: 20150608
  Receipt Date: 20150608
  Transmission Date: 20150821
  Serious: No
  Sender: FDA-Public Use
  Company Number: US-BIOGENIDEC-2015BI076272

PATIENT
  Age: 36 Year
  Sex: Female

DRUGS (1)
  1. TECFIDERA [Suspect]
     Active Substance: DIMETHYL FUMARATE
     Indication: MULTIPLE SCLEROSIS
     Dates: start: 20150502, end: 20150523

REACTIONS (4)
  - Flushing [Recovered/Resolved]
  - White blood cell count decreased [Not Recovered/Not Resolved]
  - Lymphadenopathy [Unknown]
  - Cellulitis [Recovered/Resolved]

NARRATIVE: CASE EVENT DATE: 20150502
